FAERS Safety Report 13270352 (Version 1)
Quarter: 2017Q1

REPORT INFORMATION
  Report Type: Spontaneous
  Country: US (occurrence: US)
  Receive Date: 20170224
  Receipt Date: 20170224
  Transmission Date: 20170428
  Serious: No
  Sender: FDA-Public Use
  Company Number: US-GLAXOSMITHKLINE-US2017025393

PATIENT
  Age: 75 Year
  Sex: Female

DRUGS (1)
  1. FLONASE SENSIMIST ALLERGY RELIEF [Suspect]
     Active Substance: FLUTICASONE FUROATE
     Indication: HYPERSENSITIVITY
     Dosage: UNK
     Dates: start: 20170214, end: 20170217

REACTIONS (3)
  - Palatal swelling [Recovering/Resolving]
  - Oral discomfort [Recovering/Resolving]
  - Swollen tongue [Recovering/Resolving]

NARRATIVE: CASE EVENT DATE: 20170217
